FAERS Safety Report 23870775 (Version 1)
Quarter: 2024Q2

REPORT INFORMATION
  Report Type: Other
  Country: CA (occurrence: CA)
  Receive Date: 20240518
  Receipt Date: 20240518
  Transmission Date: 20240716
  Serious: Yes (Other)
  Sender: FDA-Public Use
  Company Number: CA-APOTEX-2024AP005740

PATIENT
  Age: 16 Year
  Sex: Male
  Weight: 92 kg

DRUGS (1)
  1. GUANFACINE HYDROCHLORIDE [Suspect]
     Active Substance: GUANFACINE HYDROCHLORIDE
     Indication: Attention deficit hyperactivity disorder
     Dosage: 4 MILLIGRAM, QD
     Route: 048

REACTIONS (4)
  - Dissociation [Recovered/Resolved]
  - Disturbance in attention [Recovered/Resolved]
  - Dysphoria [Recovered/Resolved]
  - Product substitution issue [Recovered/Resolved]
